FAERS Safety Report 17974275 (Version 2)
Quarter: 2021Q1

REPORT INFORMATION
  Report Type: Report from Study
  Country: US (occurrence: US)
  Receive Date: 20200702
  Receipt Date: 20210127
  Transmission Date: 20210419
  Serious: Yes (Other)
  Sender: FDA-Public Use
  Company Number: NVSC2020US184280

PATIENT
  Sex: Female

DRUGS (1)
  1. ENTRESTO [Suspect]
     Active Substance: SACUBITRIL\VALSARTAN
     Indication: PRODUCT USED FOR UNKNOWN INDICATION
     Dosage: UNK
     Route: 065

REACTIONS (9)
  - Anxiety [Unknown]
  - Atrial fibrillation [Unknown]
  - Confusional state [Unknown]
  - Thinking abnormal [Unknown]
  - Memory impairment [Unknown]
  - Pain [Unknown]
  - Cardiac failure [Unknown]
  - Bundle branch block left [Unknown]
  - Bladder disorder [Unknown]
